FAERS Safety Report 11342071 (Version 1)
Quarter: 2015Q3

REPORT INFORMATION
  Report Type: Not Available
  Country: IT (occurrence: IT)
  Receive Date: 20150805
  Receipt Date: 20150805
  Transmission Date: 20151125
  Serious: Yes (Hospitalization)
  Sender: FDA-Public Use
  Company Number: IT-MUNDIPHARMA DS AND PHARMACOVIGILANCE-GBR-2015-0030016

PATIENT
  Age: 80 Year
  Sex: Female

DRUGS (7)
  1. TARGIN COMPRESSA A RILASCIO PROLUNGATO CONTIENE 20MG/10MG [Suspect]
     Active Substance: NALOXONE HYDROCHLORIDE\OXYCODONE HYDROCHLORIDE
     Indication: ARTHRALGIA
     Dosage: 60 MG, DAILY
     Route: 048
     Dates: start: 20150501, end: 20150601
  2. ASPIRINETTA [Concomitant]
     Active Substance: ASPIRIN
     Indication: DIABETIC VASCULAR DISORDER
     Dosage: 100 MG, UNK
     Route: 048
  3. CYMBALTA [Concomitant]
     Active Substance: DULOXETINE HYDROCHLORIDE
     Indication: DEPRESSION
     Dosage: 30 MG, UNK
     Route: 065
  4. GLIBOMET [Concomitant]
     Active Substance: GLYBURIDE\METFORMIN HYDROCHLORIDE
     Indication: DIABETES MELLITUS
     Dosage: 1000 MG, UNK
     Route: 048
  5. AMLODIPINE BESILATE W/ OLMESARTAN MEDOXOMIL [Concomitant]
     Active Substance: AMLODIPINE BESYLATE\OLMESARTAN MEDOXOMIL
     Indication: HYPERTENSION
     Dosage: 20 MG, UNK
     Route: 048
  6. DIURESIX                           /01036501/ [Concomitant]
     Indication: HYPERTENSION
     Dosage: 10 MG, UNK
     Route: 048
  7. AMIODARONE RATIOPHARM [Concomitant]
     Indication: ATRIAL FIBRILLATION
     Dosage: 200 MG, UNK
     Route: 048

REACTIONS (2)
  - Apraxia [Recovered/Resolved]
  - Confusional state [Recovered/Resolved]

NARRATIVE: CASE EVENT DATE: 20150601
